FAERS Safety Report 13365714 (Version 1)
Quarter: 2017Q1

REPORT INFORMATION
  Report Type: Spontaneous
  Country: TW (occurrence: TW)
  Receive Date: 20170323
  Receipt Date: 20170323
  Transmission Date: 20170429
  Serious: Yes (Hospitalization)
  Sender: FDA-Public Use
  Company Number: TW-IPCA LABORATORIES LIMITED-IPC201703-000300

PATIENT
  Age: 59 Year
  Sex: Female

DRUGS (6)
  1. ACETAMINOPHEN. [Concomitant]
     Active Substance: ACETAMINOPHEN
     Indication: ARTHRALGIA
  2. LITHIUM. [Interacting]
     Active Substance: LITHIUM
  3. TRAMADOL. [Suspect]
     Active Substance: TRAMADOL
     Indication: ARTHRALGIA
  4. LITHIUM. [Interacting]
     Active Substance: LITHIUM
  5. LITHIUM. [Interacting]
     Active Substance: LITHIUM
  6. LITHIUM. [Interacting]
     Active Substance: LITHIUM

REACTIONS (3)
  - Drug interaction [Unknown]
  - Serotonin syndrome [Recovered/Resolved]
  - Substance-induced psychotic disorder [Recovered/Resolved]
